FAERS Safety Report 20739040 (Version 1)
Quarter: 2022Q2

REPORT INFORMATION
  Report Type: Spontaneous
  Country: RU (occurrence: RU)
  Receive Date: 20220422
  Receipt Date: 20220422
  Transmission Date: 20220721
  Serious: Yes (Other)
  Sender: FDA-Public Use
  Company Number: RU-MACLEODS PHARMACEUTICALS US LTD-MAC2022035308

PATIENT

DRUGS (5)
  1. OLANZAPINE [Suspect]
     Active Substance: OLANZAPINE
     Indication: Bipolar disorder
     Dosage: 20 MILLIGRAM
     Route: 065
     Dates: start: 2018
  2. QUETIAPINE [Suspect]
     Active Substance: QUETIAPINE
     Indication: Bipolar disorder
     Dosage: 200 MILLIGRAM, QD
     Route: 065
  3. CARBAMAZEPINE [Suspect]
     Active Substance: CARBAMAZEPINE
     Indication: Bipolar disorder
     Dosage: 600 MILLIGRAM, QD
     Route: 065
     Dates: start: 2011
  4. OLANZAPINE [Suspect]
     Active Substance: OLANZAPINE
     Indication: Bipolar disorder
     Dosage: 10 MILLIGRAM, BID (12 HOUR)
     Route: 065
  5. PHENAZEPAM [Concomitant]
     Active Substance: PHENAZEPAM
     Indication: Bipolar disorder
     Dosage: 2 MILLILITER, BID (12 HOUR)
     Route: 042

REACTIONS (2)
  - Autoimmune thyroiditis [Unknown]
  - Hyperprolactinaemia [Unknown]
